FAERS Safety Report 24140623 (Version 1)
Quarter: 2024Q3

REPORT INFORMATION
  Report Type: Spontaneous
  Country: IT (occurrence: IT)
  Receive Date: 20240726
  Receipt Date: 20240726
  Transmission Date: 20241017
  Serious: Yes (Other)
  Sender: ORGANON
  Company Number: IT-SUN PHARMACEUTICAL INDUSTRIES LTD-2024RR-456921

PATIENT
  Age: 79 Year
  Sex: Female

DRUGS (2)
  1. EZETIMIBE [Interacting]
     Active Substance: EZETIMIBE
     Indication: Dyslipidaemia
     Dosage: UNK
     Route: 065
  2. INCLISIRAN [Interacting]
     Active Substance: INCLISIRAN
     Indication: Dyslipidaemia
     Dosage: UNK
     Route: 065

REACTIONS (1)
  - Drug intolerance [Unknown]
